FAERS Safety Report 8507164-9 (Version None)
Quarter: 2012Q3

REPORT INFORMATION
  Report Type: 
  Country: None (occurrence: None)
  Receive Date: 20120712
  Receipt Date: 20120709
  Transmission Date: 20120928
  Serious: Yes (Other)
  Sender: FDA-Public Use
  Company Number: PHHY2012BR058744

PATIENT
  Age: 47 Year
  Sex: Male

DRUGS (2)
  1. BROMOPRIDE [Suspect]
     Indication: DYSPEPSIA
     Dosage: 10 MG, Q8H
  2. FLUVOXAMINE MALEATE [Interacting]
     Indication: DEPRESSION
     Dosage: 200 MG, UNK

REACTIONS (7)
  - AKATHISIA [None]
  - DISCOMFORT [None]
  - IMPAIRED WORK ABILITY [None]
  - ANXIETY [None]
  - TREMOR [None]
  - DEPRESSED MOOD [None]
  - DRUG INTERACTION [None]
